FAERS Safety Report 17534967 (Version 2)
Quarter: 2020Q2

REPORT INFORMATION
  Report Type: Spontaneous
  Country: US (occurrence: US)
  Receive Date: 20200313
  Receipt Date: 20200417
  Transmission Date: 20200713
  Serious: No
  Sender: FDA-Public Use
  Company Number: US-VIIV HEALTHCARE LIMITED-US2020AMR041738

PATIENT
  Age: 35 Year
  Sex: Male
  Weight: 66.21 kg

DRUGS (6)
  1. TRAMADOL. [Concomitant]
     Active Substance: TRAMADOL
     Indication: INSOMNIA
     Dosage: 50 MG, BED TIME
     Route: 065
  2. INDOMETHACIN TABLET [Suspect]
     Active Substance: INDOMETHACIN
     Indication: CLUSTER HEADACHE
     Dosage: 75 MG, TID
     Route: 048
     Dates: start: 2020, end: 20200305
  3. VERAPAMIL [Suspect]
     Active Substance: VERAPAMIL HYDROCHLORIDE
     Indication: CLUSTER HEADACHE
     Dosage: 80 MG, BID
     Route: 048
     Dates: start: 2020, end: 20200305
  4. ROSUVASTATIN. [Concomitant]
     Active Substance: ROSUVASTATIN
     Indication: HYPERLIPIDAEMIA
     Dosage: 20 MG, QD
     Route: 065
     Dates: start: 20190816
  5. DOVATO [Suspect]
     Active Substance: DOLUTEGRAVIR SODIUM\LAMIVUDINE
     Indication: PRODUCT USED FOR UNKNOWN INDICATION
     Dosage: 50 UNK
     Route: 048
     Dates: start: 201908
  6. DOVATO [Suspect]
     Active Substance: DOLUTEGRAVIR SODIUM\LAMIVUDINE
     Dosage: 300 MG
     Route: 048
     Dates: end: 20200305

REACTIONS (4)
  - Ill-defined disorder [Unknown]
  - Cluster headache [Recovered/Resolved]
  - Hyperlipidaemia [Unknown]
  - Insomnia [Unknown]

NARRATIVE: CASE EVENT DATE: 201910
